FAERS Safety Report 8150636-X (Version None)
Quarter: 2012Q1

REPORT INFORMATION
  Report Type: 
  Country: None (occurrence: None)
  Receive Date: 20120220
  Receipt Date: 20120209
  Transmission Date: 20120608
  Serious: Yes (Hospitalization)
  Sender: FDA-Public Use
  Company Number: PHHY2012IT008846

PATIENT
  Sex: Male

DRUGS (3)
  1. RITALIN [Suspect]
     Indication: AUTISM SPECTRUM DISORDER
     Dosage: 10 MG, UNK
     Route: 048
     Dates: start: 20120109, end: 20120109
  2. MELATONIN [Concomitant]
     Dosage: 6 DRP, UNK
  3. EN [Concomitant]
     Dosage: 14 DRP, UNK

REACTIONS (1)
  - AGITATION [None]
